FAERS Safety Report 23213263 (Version 2)
Quarter: 2023Q4

REPORT INFORMATION
  Report Type: Report from Study
  Country: US (occurrence: US)
  Receive Date: 20231121
  Receipt Date: 20231208
  Transmission Date: 20240109
  Serious: Yes (Hospitalization, Other)
  Sender: FDA-Public Use
  Company Number: US-ARGENX-2023-ARGX-US003727

PATIENT

DRUGS (1)
  1. VYVGART [Suspect]
     Active Substance: EFGARTIGIMOD ALFA-FCAB
     Indication: Myasthenia gravis
     Dosage: UNK
     Route: 042

REACTIONS (14)
  - Hospitalisation [Unknown]
  - Choking [Unknown]
  - Pneumonia aspiration [Unknown]
  - Therapeutic product effect decreased [Unknown]
  - Condition aggravated [Unknown]
  - Loss of personal independence in daily activities [Unknown]
  - Eating disorder [Unknown]
  - Dysphagia [Unknown]
  - Oxygen saturation decreased [Unknown]
  - Dysarthria [Unknown]
  - Fatigue [Unknown]
  - Muscular weakness [Unknown]
  - Diplopia [Unknown]
  - Bronchospasm [Unknown]
